FAERS Safety Report 23956256 (Version 2)
Quarter: 2024Q4

REPORT INFORMATION
  Report Type: Spontaneous
  Country: US (occurrence: US)
  Receive Date: 20240610
  Receipt Date: 20241231
  Transmission Date: 20250115
  Serious: Yes (Other)
  Sender: PFIZER
  Company Number: US-PFIZER INC-202400188428

PATIENT
  Age: 65 Year
  Sex: Female
  Weight: 61.23 kg

DRUGS (1)
  1. IBRANCE [Suspect]
     Active Substance: PALBOCICLIB
     Indication: Breast cancer stage IV
     Dosage: 100 MG TABLETS FOR 21 DAYS ON 7 DAYS OFF
     Dates: start: 20170401

REACTIONS (2)
  - Spinal cord injury cervical [Unknown]
  - Fall [Unknown]

NARRATIVE: CASE EVENT DATE: 20230501
